FAERS Safety Report 24659217 (Version 1)
Quarter: 2024Q4

REPORT INFORMATION
  Report Type: Report from Study
  Country: ES (occurrence: ES)
  Receive Date: 20241125
  Receipt Date: 20241125
  Transmission Date: 20250115
  Serious: Yes (Other)
  Sender: TEVA
  Company Number: ES-TEVA-VS-3267330

PATIENT
  Age: 62 Year
  Sex: Male

DRUGS (8)
  1. TERIPARATIDE [Suspect]
     Active Substance: TERIPARATIDE
     Indication: Osteoporosis
     Route: 065
     Dates: start: 20240917
  2. LAVENTAIR [Concomitant]
     Indication: Oxygen consumption increased
     Dosage: DOSAGE: 3 INHALATIONS PER DAY; START DATE: A WEEK AGO
     Route: 055
     Dates: start: 202411
  3. ATORVASTATIN CALCIUM\EZETIMIBE [Concomitant]
     Active Substance: ATORVASTATIN CALCIUM\EZETIMIBE
     Indication: Hypercholesterolaemia
     Dosage: START DATE: A LONG TIME AGO
  4. LORAZEPAM [Concomitant]
     Active Substance: LORAZEPAM
     Indication: Depression
     Dosage: TIME INTERVAL: 0.33333333 DAYS: DOSAGE: 1-1-1,START DATE: A LONG TIME AGO
  5. VILDAGLIPTIN [Concomitant]
     Active Substance: VILDAGLIPTIN
     Indication: Type 2 diabetes mellitus
     Dosage: START DATE: A LONG TIME AGO
  6. LANSOPRAZOLE [Concomitant]
     Active Substance: LANSOPRAZOLE
     Indication: Antacid therapy
     Dosage: START DATE: A LONG TIME AGO
  7. Deprax [Concomitant]
     Indication: Depression
     Dosage: DOSAGE: 0-0-1,START DATE: A LONG TIME AGO
  8. COSOPT [Concomitant]
     Active Substance: DORZOLAMIDE HYDROCHLORIDE\TIMOLOL MALEATE
     Indication: Intraocular pressure test abnormal
     Dosage: DROPS,START DATE: A LONG TIME AGO

REACTIONS (3)
  - Muscle spasms [Not Recovered/Not Resolved]
  - Arthralgia [Not Recovered/Not Resolved]
  - Sciatica [Not Recovered/Not Resolved]

NARRATIVE: CASE EVENT DATE: 20240101
